FAERS Safety Report 21112262 (Version 26)
Quarter: 2024Q3

REPORT INFORMATION
  Report Type: Spontaneous
  Country: PK (occurrence: PK)
  Receive Date: 20220721
  Receipt Date: 20240827
  Transmission Date: 20241017
  Serious: Yes (Other)
  Sender: PFIZER
  Company Number: PK-PFIZER INC-202200173436

PATIENT
  Age: 54 Year
  Sex: Female

DRUGS (22)
  1. IBRANCE [Suspect]
     Active Substance: PALBOCICLIB
     Indication: Breast cancer metastatic
     Dosage: 125 MG, ONCE DAILY 3 WEEKS ON AND 1 WEEK OFF
     Route: 048
     Dates: start: 20211207
  2. FEMARA [Concomitant]
     Active Substance: LETROZOLE
     Dosage: 2.5 MG, 1X/DAY
  3. CHONDROITIN SULFATE (BOVINE)\GLUCOSAMINE [Concomitant]
     Active Substance: CHONDROITIN SULFATE (BOVINE)\GLUCOSAMINE SULFATE
     Dosage: UNK, 2X/DAY
  4. COLOFAC [MEBEVERINE HYDROCHLORIDE] [Concomitant]
     Dosage: UNK, 2X/DAY
  5. EVION [Concomitant]
     Active Substance: .ALPHA.-TOCOPHEROL ACETATE
     Dosage: 400 MG, 1X/DAY(1+0)
  6. FILGRASTIM [Concomitant]
     Active Substance: FILGRASTIM
     Dosage: UNK, 2X/WEEK
     Route: 058
  7. FILGRASTIM [Concomitant]
     Active Substance: FILGRASTIM
     Dosage: 300 MCG, 2X/WEEK (3 MONTHS)
     Route: 058
  8. FILGRASTIM [Concomitant]
     Active Substance: FILGRASTIM
     Dosage: 300 MCG, TWICE/MONTH
     Route: 058
  9. FOSAMAX [Concomitant]
     Active Substance: ALENDRONATE SODIUM
     Dosage: TWICE/MONTH
  10. GABFAST [Concomitant]
     Dosage: 150 MG, 1X/DAY (IN NIGHT)
  11. MOTILIUM-V [Concomitant]
     Indication: Appetite disorder
     Dosage: UNK
  12. OSCAL D [CALCIUM CARBONATE;COLECALCIFEROL] [Concomitant]
     Dosage: UNK, 1X/DAY
     Route: 048
  13. OSNATE D [Concomitant]
     Dosage: UNK, 1X/DAY
     Route: 048
  14. SENSIVAL [Concomitant]
     Dosage: 25 MG, 1X/DAY (AT NIGHT)
  15. SUNNY D [Concomitant]
     Dosage: 200000 IU, MONTHLY
  16. SUNNY D [Concomitant]
     Dosage: 200000
     Route: 048
  17. XGEVA [Concomitant]
     Active Substance: DENOSUMAB
     Dosage: 120 MG, MONTHLY
     Route: 058
  18. XGEVA [Concomitant]
     Active Substance: DENOSUMAB
     Dosage: 120 MG, MONTHLY
     Route: 058
  19. XOBIX [Concomitant]
     Dosage: 150 MG, 1X/DAY(1+0) WITH LUNCH
  20. ZOLEDRONIC ACID [Concomitant]
     Active Substance: ZOLEDRONIC ACID
     Dosage: 4 MG, MONTHLY (1/4)
     Route: 042
  21. ZOLEDRONIC ACID [Concomitant]
     Active Substance: ZOLEDRONIC ACID
     Dosage: 4 MG, ONCE AFTER 2 MONTHS
     Route: 042
  22. ZOMETA [Concomitant]
     Active Substance: ZOLEDRONIC ACID
     Dosage: 4 MG, ONCE A MONTH
     Route: 042

REACTIONS (14)
  - Nephrolithiasis [Unknown]
  - Foreign body in throat [Unknown]
  - Dysphagia [Unknown]
  - Arthralgia [Unknown]
  - Glycosylated haemoglobin increased [Unknown]
  - Alanine aminotransferase increased [Unknown]
  - Aspartate aminotransferase increased [Unknown]
  - Hepatic steatosis [Unknown]
  - Pain [Unknown]
  - Back pain [Unknown]
  - Musculoskeletal stiffness [Unknown]
  - Pain in extremity [Unknown]
  - Skin laceration [Unknown]
  - Product prescribing error [Unknown]

NARRATIVE: CASE EVENT DATE: 20220117
